FAERS Safety Report 7770034-8 (Version None)
Quarter: 2011Q3

REPORT INFORMATION
  Report Type: 
  Country: None (occurrence: None)
  Receive Date: 20110922
  Receipt Date: 20110418
  Transmission Date: 20111222
  Serious: Yes (Other)
  Sender: FDA-Public Use
  Company Number: US-ASTRAZENECA-2007UW05058

PATIENT
  Age: 45 Year
  Sex: Female
  Weight: 47.6 kg

DRUGS (6)
  1. SEROQUEL [Suspect]
     Route: 048
     Dates: start: 20050226
  2. ABILIFY [Concomitant]
     Dates: start: 20100101
  3. RISPERDAL [Concomitant]
     Dates: start: 20050101, end: 20100101
  4. CLONAZEPAM [Concomitant]
     Dosage: ONE TABLET IN THE MORNING AND TWO AT NIGHT AS NEEDED
     Dates: start: 20050226
  5. SEROQUEL [Suspect]
     Indication: SLEEP DISORDER
     Route: 048
     Dates: start: 20040101, end: 20060515
  6. EFFEXOR XR [Concomitant]
     Dates: start: 20050226

REACTIONS (4)
  - BLOOD CHOLESTEROL INCREASED [None]
  - HYPERLIPIDAEMIA [None]
  - PANCREATITIS [None]
  - TYPE 2 DIABETES MELLITUS [None]
